FAERS Safety Report 7851711-7 (Version None)
Quarter: 2011Q4

REPORT INFORMATION
  Report Type: 
  Country: None (occurrence: None)
  Receive Date: 20111026
  Receipt Date: 20111020
  Transmission Date: 20120403
  Serious: Yes (Hospitalization, Other)
  Sender: FDA-Public Use
  Company Number: US-ROCHE-793370

PATIENT
  Sex: Female

DRUGS (1)
  1. BONIVA [Suspect]
     Indication: FOOT FRACTURE
     Route: 065

REACTIONS (8)
  - DIARRHOEA [None]
  - GASTRITIS [None]
  - RECTAL HAEMORRHAGE [None]
  - CARDIAC DISORDER [None]
  - COLITIS [None]
  - FUNGAL OESOPHAGITIS [None]
  - OESOPHAGEAL CANDIDIASIS [None]
  - VOMITING [None]
